FAERS Safety Report 6097312-5 (Version None)
Quarter: 2009Q1

REPORT INFORMATION
  Report Type: 
  Country: None (occurrence: None)
  Receive Date: 20090227
  Receipt Date: 20090108
  Transmission Date: 20090719
  Serious: No
  Sender: FDA-Public Use
  Company Number: A0762696A

PATIENT
  Age: 4 Year
  Sex: Male

DRUGS (2)
  1. ARRANON [Suspect]
     Dosage: 650MGM2 PER DAY
     Route: 042
     Dates: start: 20090105
  2. ZOFRAN [Concomitant]

REACTIONS (2)
  - RASH [None]
  - URTICARIA [None]
